FAERS Safety Report 23379582 (Version 1)
Quarter: 2024Q1

REPORT INFORMATION
  Report Type: Spontaneous
  Country: US (occurrence: US)
  Receive Date: 20240108
  Receipt Date: 20240108
  Transmission Date: 20240409
  Serious: No
  Sender: FDA-Public Use
  Company Number: US-PFIZER INC-202300457091

PATIENT
  Age: 66 Year
  Sex: Female

DRUGS (6)
  1. PAXLOVID [Suspect]
     Active Substance: NIRMATRELVIR\RITONAVIR
     Indication: COVID-19 treatment
     Dosage: UNK
     Dates: start: 20231215, end: 20231219
  2. RADICAVA ORS [Concomitant]
     Active Substance: EDARAVONE
     Dosage: UNK
     Dates: start: 20231215, end: 20231225
  3. RELYVRIO [Concomitant]
     Active Substance: SODIUM PHENYLBUTYRATE\TAURURSODIOL
     Dosage: UNK (AMYLYX)
     Dates: start: 20230310
  4. RILUZOLE [Concomitant]
     Active Substance: RILUZOLE
     Dosage: UNK (GLENMARK PHARMACEUTICALS)
     Dates: start: 20230224
  5. FLONASE [Concomitant]
     Active Substance: FLUTICASONE PROPIONATE
     Dosage: UNK
     Dates: start: 20230601
  6. OMEPRAZOLE [Concomitant]
     Active Substance: OMEPRAZOLE
     Dosage: UNK (GLENMARK PHARMACEUTICALS)
     Dates: start: 20230512

REACTIONS (2)
  - COVID-19 [Not Recovered/Not Resolved]
  - Disease recurrence [Not Recovered/Not Resolved]

NARRATIVE: CASE EVENT DATE: 20231223
